FAERS Safety Report 14281330 (Version 1)
Quarter: 2017Q4

REPORT INFORMATION
  Report Type: Other
  Country: CA (occurrence: CA)
  Receive Date: 20171213
  Receipt Date: 20171213
  Transmission Date: 20180321
  Serious: Yes (Death, Hospitalization, Other)
  Sender: FDA-Public Use
  Company Number: CA-APOTEX-2017AP022414

PATIENT
  Age: 72 Year
  Sex: Female

DRUGS (1)
  1. GRASTOFIL [Suspect]
     Active Substance: FILGRASTIM
     Indication: LEUKAEMIA
     Dosage: UNK
     Route: 065
     Dates: start: 20171106, end: 201711

REACTIONS (2)
  - Death [Fatal]
  - Hospitalisation [Recovered/Resolved]

NARRATIVE: CASE EVENT DATE: 20171106
